FAERS Safety Report 5486278-4 (Version None)
Quarter: 2007Q3

REPORT INFORMATION
  Report Type: 
  Country: None (occurrence: None)
  Receive Date: 20070917
  Receipt Date: 20070621
  Transmission Date: 20080115
  Serious: Yes (Hospitalization)
  Sender: FDA-Public Use
  Company Number: S07-USA-02693-01

PATIENT
  Age: 15 Year
  Sex: Female

DRUGS (9)
  1. CELEXA [Suspect]
     Indication: DEPRESSION
     Dates: start: 20060309
  2. SEROQUEL [Suspect]
  3. FLAGYL [Suspect]
     Indication: CROHN'S DISEASE
     Dosage: 250 MG TID PO
     Route: 048
     Dates: start: 20050624
  4. PENTASA [Concomitant]
  5. AZATHIOPRINE [Concomitant]
  6. AMOXICILLIN [Concomitant]
  7. HYOSCYAMINE ER [Concomitant]
  8. PREVACID [Concomitant]
  9. AMITRIPTYLINE HCL [Concomitant]

REACTIONS (3)
  - OVERDOSE [None]
  - SUICIDAL IDEATION [None]
  - SUICIDE ATTEMPT [None]
